FAERS Safety Report 9690169 (Version 1)
Quarter: 2013Q4

REPORT INFORMATION
  Report Type: Report from Study
  Country: US (occurrence: US)
  Receive Date: 20131115
  Receipt Date: 20131115
  Transmission Date: 20140711
  Serious: Yes (Life-Threatening, Hospitalization)
  Sender: FDA-Public Use
  Company Number: PHEH2013US023863

PATIENT
  Sex: Female

DRUGS (14)
  1. TASIGNA [Suspect]
     Indication: CHRONIC MYELOID LEUKAEMIA
     Dosage: 300 MG, BID
     Route: 048
     Dates: start: 201108
  2. AMLODIPINE [Concomitant]
  3. METFORMIN [Concomitant]
  4. SIMVASTATIN [Concomitant]
  5. GLIMEPIRIDE [Concomitant]
  6. METOPROLOL SUCCINATE [Concomitant]
  7. PRILOSEC [Concomitant]
  8. ALLOPURINOL [Concomitant]
  9. PRADAXA [Concomitant]
  10. CALCIUM 500+D [Concomitant]
  11. COQ-10 [Concomitant]
  12. FISH OIL [Concomitant]
  13. VITAMIN E [Concomitant]
  14. PROPAFENONE [Concomitant]

REACTIONS (4)
  - Haemoglobin decreased [Unknown]
  - Heart rate irregular [Unknown]
  - Crying [Unknown]
  - Insomnia [Unknown]
